FAERS Safety Report 6877349-6 (Version None)
Quarter: 2010Q3

REPORT INFORMATION
  Report Type: 
  Country: None (occurrence: None)
  Receive Date: 20100727
  Receipt Date: 20091001
  Transmission Date: 20110219
  Serious: No
  Sender: FDA-Public Use
  Company Number: US-ABBOTT-09P-163-0600683-00

PATIENT
  Sex: Female
  Weight: 68.1 kg

DRUGS (3)
  1. SYNTHROID [Suspect]
     Indication: GOITRE
     Dosage: 1/2 TAB ONCE A DAY
     Route: 048
     Dates: start: 20090827, end: 20090910
  2. SYNTHROID [Suspect]
     Route: 048
     Dates: start: 20090910
  3. VITAMINS [Concomitant]
     Indication: VITAMIN SUPPLEMENTATION

REACTIONS (5)
  - BONE PAIN [None]
  - DYSPNOEA [None]
  - HEADACHE [None]
  - NAUSEA [None]
  - TOOTHACHE [None]
